FAERS Safety Report 4583659-8 (Version None)
Quarter: 2005Q1

REPORT INFORMATION
  Report Type: 
  Country: None (occurrence: None)
  Receive Date: 20050211
  Receipt Date: 20041208
  Transmission Date: 20050727
  Serious: Yes (Hospitalization)
  Sender: FDA-Public Use
  Company Number: F(LIT)05/0105

PATIENT
  Age: 12 Year
  Sex: Male

DRUGS (1)
  1. AMOXICILLIN [Suspect]
     Indication: UPPER RESPIRATORY TRACT INFECTION

REACTIONS (16)
  - BLOOD PRESSURE INCREASED [None]
  - HYPERTENSION [None]
  - LUPUS NEPHRITIS [None]
  - NEPHROTIC SYNDROME [None]
  - OEDEMA [None]
  - OEDEMA PERIPHERAL [None]
  - PERIORBITAL OEDEMA [None]
  - PITTING OEDEMA [None]
  - RASH [None]
  - RASH ERYTHEMATOUS [None]
  - RASH MACULO-PAPULAR [None]
  - RENAL FAILURE [None]
  - RENAL FAILURE ACUTE [None]
  - SCROTAL OEDEMA [None]
  - SYSTEMIC LUPUS ERYTHEMATOSUS [None]
  - TYMPANIC MEMBRANE HYPERAEMIA [None]
